FAERS Safety Report 12139421 (Version 3)
Quarter: 2016Q2

REPORT INFORMATION
  Report Type: Report from Study
  Country: PT (occurrence: PT)
  Receive Date: 20160303
  Receipt Date: 20160624
  Transmission Date: 20160815
  Serious: Yes (Hospitalization)
  Sender: FDA-Public Use
  Company Number: PT-BIOGEN-2015BI00161520

PATIENT
  Age: 39 Year
  Sex: Female

DRUGS (2)
  1. FAMPRIDINE [Suspect]
     Active Substance: DALFAMPRIDINE
     Indication: GAIT DISTURBANCE
     Route: 048
     Dates: start: 20150928
  2. TERIFLUNOMIDE [Concomitant]
     Active Substance: TERIFLUNOMIDE
     Route: 048
     Dates: start: 20151123

REACTIONS (2)
  - Pregnancy [Recovered/Resolved]
  - Ectopic pregnancy [Recovered/Resolved]

NARRATIVE: CASE EVENT DATE: 20151212
